FAERS Safety Report 9390309 (Version 1)
Quarter: 2013Q3

REPORT INFORMATION
  Report Type: Spontaneous
  Country: US (occurrence: US)
  Receive Date: 20130709
  Receipt Date: 20130709
  Transmission Date: 20140515
  Serious: Yes (Hospitalization)
  Sender: FDA-Public Use
  Company Number: US-ASTRAZENECA-2013SE49985

PATIENT
  Sex: Female

DRUGS (4)
  1. TOPROL XL [Suspect]
     Indication: HYPERTENSION
     Route: 048
  2. TOPROL XL [Suspect]
     Indication: HYPERTENSION
     Route: 048
     Dates: start: 2012, end: 2012
  3. TOPROL XL [Suspect]
     Indication: HYPERTENSION
     Route: 048
     Dates: start: 2012
  4. CRESTOR [Suspect]
     Indication: BLOOD CHOLESTEROL ABNORMAL
     Route: 048
     Dates: start: 2012

REACTIONS (8)
  - Intracranial aneurysm [Recovered/Resolved]
  - Adverse drug reaction [Unknown]
  - Blood pressure increased [Recovered/Resolved]
  - Musculoskeletal stiffness [Unknown]
  - Night sweats [Unknown]
  - Hair growth abnormal [Unknown]
  - Blood cholesterol abnormal [Unknown]
  - Off label use [Not Recovered/Not Resolved]
